FAERS Safety Report 7879472-6 (Version None)
Quarter: 2011Q4

REPORT INFORMATION
  Report Type: 
  Country: None (occurrence: None)
  Receive Date: 20111101
  Receipt Date: 20110214
  Transmission Date: 20120403
  Serious: No
  Sender: FDA-Public Use
  Company Number: US-ABBOTT-11P-163-0706332-00

PATIENT
  Sex: Female
  Weight: 61.29 kg

DRUGS (1)
  1. BIAXIN [Suspect]
     Indication: PHARYNGITIS STREPTOCOCCAL
     Route: 048
     Dates: start: 20110204

REACTIONS (7)
  - ABDOMINAL PAIN [None]
  - DYSGEUSIA [None]
  - ABDOMINAL DISCOMFORT [None]
  - DIZZINESS [None]
  - DECREASED APPETITE [None]
  - FLATULENCE [None]
  - ABDOMINAL DISTENSION [None]
